FAERS Safety Report 10774842 (Version 1)
Quarter: 2015Q1

REPORT INFORMATION
  Report Type: Spontaneous
  Country: US (occurrence: None)
  Receive Date: 20150206
  Receipt Date: 20150206
  Transmission Date: 20150721
  Serious: Yes (Hospitalization)
  Sender: FDA-Public Use
  Company Number: HYP201408-000056

PATIENT
  Age: 68 Year
  Sex: Male

DRUGS (11)
  1. VITAMIN B12 [Concomitant]
     Active Substance: CYANOCOBALAMIN
  2. RAVICTI [Suspect]
     Active Substance: GLYCEROL PHENYLBUTYRATE
     Indication: UREA CYCLE ENZYME DEFICIENCY
     Dates: start: 20130912
  3. LISINOPRIL. [Concomitant]
     Active Substance: LISINOPRIL
  4. ASCORBIC ACID\CHONDROITIN SULFATE (BOVINE)\GLUCOSAMINE SULFATE\MANGANESE [Concomitant]
     Active Substance: ASCORBIC ACID\CHONDROITIN SULFATE (BOVINE)\GLUCOSAMINE SULFATE\MANGANESE
  5. FUROSEMIDE. [Concomitant]
     Active Substance: FUROSEMIDE
  6. CALCIUM CARBONATE. [Concomitant]
     Active Substance: CALCIUM CARBONATE
  7. MULTIVITAMIN AND MINERAL (ASCORBIC ACID, CALCIUM PANTOTHENATE, CALCIUM PHOSPHATE DIBASIC, COLECALCIFEROL, COPPER SULFATE, CYANOCOBALAMIN, DL-ALPHA TOCOPHERYL ACETATE, FERROUS FUMARATE, MAGNESIUM OXIDE, MANGANESE SULFATE, NICOTINAMIDE, POTASSIUM IODIDE, POTASSIUM SULFATE, PYRIDOXINE HYDROCHLORIDE, RETINOL ACETATE, RIBOFLAVIN, THIAMINE MONONITRATE, ZINC OXIDE) [Concomitant]
  8. VITAMIN C [Concomitant]
     Active Substance: ASCORBIC ACID
  9. CITRULLINE [Concomitant]
     Active Substance: CITRULLINE
  10. ASPIRIN (ACETYLSALICYLIC ACID) [Concomitant]
     Active Substance: ASPIRIN
  11. TYLENOL [Concomitant]
     Active Substance: ACETAMINOPHEN

REACTIONS (4)
  - Fungal infection [None]
  - Ear infection [None]
  - Confusional state [None]
  - Hyperammonaemic crisis [None]

NARRATIVE: CASE EVENT DATE: 20140806
